FAERS Safety Report 24832995 (Version 1)
Quarter: 2025Q1

REPORT INFORMATION
  Report Type: Spontaneous
  Country: US (occurrence: US)
  Receive Date: 20250111
  Receipt Date: 20250111
  Transmission Date: 20250409
  Serious: No
  Sender: ABBVIE
  Company Number: US-ABBVIE-6076371

PATIENT

DRUGS (1)
  1. SKYRIZI [Suspect]
     Active Substance: RISANKIZUMAB-RZAA
     Indication: Crohn^s disease
     Route: 042
     Dates: start: 202405

REACTIONS (5)
  - Pain [Unknown]
  - Crohn^s disease [Not Recovered/Not Resolved]
  - Myalgia [Unknown]
  - Stress [Unknown]
  - Fatigue [Unknown]
